FAERS Safety Report 23991670 (Version 1)
Quarter: 2024Q2

REPORT INFORMATION
  Report Type: Spontaneous
  Country: PT (occurrence: PT)
  Receive Date: 20240619
  Receipt Date: 20240619
  Transmission Date: 20240716
  Serious: Yes (Other)
  Sender: FDA-Public Use
  Company Number: PT-TASMAN PHARMA, INC.-2024TSM00201

PATIENT
  Age: 34 Year
  Sex: Male

DRUGS (2)
  1. CLOZAPINE [Suspect]
     Active Substance: CLOZAPINE
     Indication: Schizoaffective disorder
     Dosage: 25 MG
  2. CLOZAPINE [Suspect]
     Active Substance: CLOZAPINE
     Dosage: 100 MG (TITRATED TO)

REACTIONS (4)
  - Withdrawal catatonia [Recovered/Resolved]
  - Salivary hypersecretion [Recovered/Resolved]
  - Tachycardia [Recovered/Resolved]
  - Sedation [Recovered/Resolved]
